FAERS Safety Report 19881947 (Version 2)
Quarter: 2021Q4

REPORT INFORMATION
  Report Type: Report from Study
  Country: CA (occurrence: CA)
  Receive Date: 20210925
  Receipt Date: 20211224
  Transmission Date: 20220303
  Serious: Yes (Other)
  Sender: FDA-Public Use
  Company Number: CA-ABBVIE-21K-028-4094644-00

PATIENT
  Age: 76 Year
  Sex: Male

DRUGS (17)
  1. LUPRON DEPOT [Suspect]
     Active Substance: LEUPROLIDE ACETATE
     Indication: Prostate cancer
     Route: 030
     Dates: start: 20181218
  2. LUPRON DEPOT [Suspect]
     Active Substance: LEUPROLIDE ACETATE
     Route: 030
  3. VENLAFAXINE HYDROCHLORIDE [Concomitant]
     Active Substance: VENLAFAXINE HYDROCHLORIDE
     Indication: Product used for unknown indication
  4. CYANOCOBALAMIN [Concomitant]
     Active Substance: CYANOCOBALAMIN
     Indication: Product used for unknown indication
  5. ROSUVASTATIN CALCIUM [Concomitant]
     Active Substance: ROSUVASTATIN CALCIUM
     Indication: Product used for unknown indication
  6. AMITRIPTYLINE HYDROCHLORIDE [Concomitant]
     Active Substance: AMITRIPTYLINE HYDROCHLORIDE
     Indication: Product used for unknown indication
  7. PERINDOPRIL ERBUMINE [Concomitant]
     Active Substance: PERINDOPRIL ERBUMINE
     Indication: Product used for unknown indication
  8. WARFARIN SODIUM [Concomitant]
     Active Substance: WARFARIN SODIUM
     Indication: Product used for unknown indication
  9. METFORMIN [Concomitant]
     Active Substance: METFORMIN HYDROCHLORIDE
     Indication: Product used for unknown indication
  10. VITAMIN D3 [Concomitant]
     Active Substance: CHOLECALCIFEROL
     Indication: Product used for unknown indication
  11. CALCIUM CARBONATE [Concomitant]
     Active Substance: CALCIUM CARBONATE
     Indication: Product used for unknown indication
  12. TYLENOL ARTHRITIS PAIN [Concomitant]
     Active Substance: ACETAMINOPHEN
     Indication: Product used for unknown indication
  13. XTANDI [Concomitant]
     Active Substance: ENZALUTAMIDE
     Indication: Product used for unknown indication
  14. INSULIN DEGLUDEC [Concomitant]
     Active Substance: INSULIN DEGLUDEC
     Indication: Product used for unknown indication
  15. HYDROMORPHONE [Concomitant]
     Active Substance: HYDROMORPHONE
     Indication: Product used for unknown indication
     Route: 048
  16. HYDROMORPHONE [Concomitant]
     Active Substance: HYDROMORPHONE
     Route: 048
  17. RADIUM [Concomitant]
     Active Substance: RADIUM
     Indication: Product used for unknown indication
     Dates: start: 20211216

REACTIONS (3)
  - Femur fracture [Unknown]
  - Hip arthroplasty [Unknown]
  - Arthralgia [Unknown]

NARRATIVE: CASE EVENT DATE: 20210915
